FAERS Safety Report 11693564 (Version 1)
Quarter: 2015Q4

REPORT INFORMATION
  Report Type: Report from Study
  Country: DK (occurrence: IT)
  Receive Date: 20151103
  Receipt Date: 20151103
  Transmission Date: 20160304
  Serious: Yes (Other)
  Sender: FDA-Public Use
  Company Number: IT-FRI-1000080518

PATIENT
  Age: 37 Year
  Sex: Male

DRUGS (1)
  1. ESCITALOPRAM [Suspect]
     Active Substance: ESCITALOPRAM OXALATE
     Indication: DEPRESSION
     Dosage: 15 ML
     Route: 048
     Dates: start: 20141114

REACTIONS (2)
  - Drug ineffective [Unknown]
  - Drug abuse [Unknown]

NARRATIVE: CASE EVENT DATE: 20141114
